FAERS Safety Report 7891842-9 (Version None)
Quarter: 2011Q4

REPORT INFORMATION
  Report Type: 
  Country: None (occurrence: None)
  Receive Date: 20111103
  Receipt Date: 20110810
  Transmission Date: 20120403
  Serious: Yes (Hospitalization)
  Sender: FDA-Public Use
  Company Number: US-AMGEN-USASP2011040728

PATIENT
  Age: 65 Year
  Sex: Female

DRUGS (4)
  1. TREXALL [Concomitant]
     Dosage: 1 MG, QWK
     Dates: start: 20110501
  2. ENBREL [Suspect]
     Indication: RHEUMATOID ARTHRITIS
     Dosage: 50 MG, QWK
     Dates: start: 20010101, end: 20110501
  3. HUMIRA [Concomitant]
  4. PLAQUENIL [Concomitant]

REACTIONS (4)
  - INFUSION SITE INFECTION [None]
  - BACK PAIN [None]
  - ARTHRALGIA [None]
  - PAIN IN EXTREMITY [None]
